FAERS Safety Report 10578299 (Version 1)
Quarter: 2014Q4

REPORT INFORMATION
  Report Type: Spontaneous
  Country: US (occurrence: None)
  Receive Date: 20141111
  Receipt Date: 20141111
  Transmission Date: 20150529
  Serious: Yes (Hospitalization)
  Sender: FDA-Public Use
  Company Number: None

PATIENT
  Age: 70 Year
  Sex: Female
  Weight: 73.5 kg

DRUGS (10)
  1. PF-04136309 [Suspect]
     Active Substance: INVESTIGATIONAL PRODUCT
     Indication: PANCREATIC CARCINOMA
     Route: 048
     Dates: start: 20140121, end: 20140201
  2. MELOXICAM. [Concomitant]
     Active Substance: MELOXICAM
  3. MULTIVITAMIN [Concomitant]
     Active Substance: VITAMINS
  4. FOLFIRINOX [Suspect]
     Active Substance: FLUOROURACIL\IRINOTECAN\LEUCOVORIN\OXALIPLATIN
     Indication: PANCREATIC CARCINOMA
     Dosage: IV, Q 2 WEEKS
     Route: 042
     Dates: start: 20140121
  5. CALCIUM [Concomitant]
     Active Substance: CALCIUM
  6. PANTOPRAZOLE [Concomitant]
     Active Substance: PANTOPRAZOLE SODIUM
  7. VITAMIN D-3 [Concomitant]
  8. PRAVASTATIN [Concomitant]
     Active Substance: PRAVASTATIN\PRAVASTATIN SODIUM
  9. PROCHLORPERAZINE. [Concomitant]
     Active Substance: PROCHLORPERAZINE
  10. DEXAMETHASONE. [Concomitant]
     Active Substance: DEXAMETHASONE

REACTIONS (3)
  - Klebsiella infection [None]
  - Abdominal infection [None]
  - Sepsis [None]

NARRATIVE: CASE EVENT DATE: 20140226
